FAERS Safety Report 6457743-8 (Version None)
Quarter: 2009Q4

REPORT INFORMATION
  Report Type: 
  Country: None (occurrence: None)
  Receive Date: 20091125
  Receipt Date: 20091123
  Transmission Date: 20100525
  Serious: Yes (Death, Hospitalization)
  Sender: FDA-Public Use
  Company Number: DE-BRISTOL-MYERS SQUIBB COMPANY-14868566

PATIENT
  Age: 59 Year
  Sex: Male
  Weight: 87 kg

DRUGS (8)
  1. CISPLATIN [Suspect]
     Indication: NON-SMALL CELL LUNG CANCER
     Dosage: DAY 1 EVERY 21 DAYS;TAKEN OFF FROM PROTOCOL ON 09NOV09.
     Route: 042
     Dates: start: 20091029, end: 20091029
  2. ALIMTA [Suspect]
     Indication: NON-SMALL CELL LUNG CANCER
     Dosage: DAY 1 EVERY 21 DAYS;TAKEN OFF FROM PROTOCOL ON 09NOV09.
     Route: 042
     Dates: start: 20091029, end: 20091029
  3. FOLIC ACID [Concomitant]
     Dates: start: 20091023
  4. VITAMIN B-12 [Concomitant]
     Dates: start: 20091023
  5. DEXAMETHASONE TAB [Concomitant]
     Dates: start: 20091028, end: 20091031
  6. SIMVASTATIN [Concomitant]
     Indication: HYPERCHOLESTEROLAEMIA
     Dates: start: 20091023
  7. OLMESARTAN MEDOXOMIL [Concomitant]
     Indication: HYPERTENSION
     Dates: start: 20091023
  8. EMEND [Concomitant]
     Indication: PROPHYLAXIS
     Dates: start: 20091029, end: 20091031

REACTIONS (2)
  - CEREBROVASCULAR ACCIDENT [None]
  - PANCREATITIS [None]
